FAERS Safety Report 10335005 (Version 1)
Quarter: 2014Q3

REPORT INFORMATION
  Report Type: Spontaneous
  Country: US (occurrence: None)
  Receive Date: 20140721
  Receipt Date: 20140721
  Transmission Date: 20150326
  Serious: Yes (Other)
  Sender: FDA-Public Use
  Company Number: A1081370A

PATIENT
  Age: 55 Year
  Sex: Female

DRUGS (1)
  1. STRONTIUM CHLORIDE TOOTHPASTE (STRONTIUM CHLORIDE) [Suspect]
     Active Substance: STRONTIUM CHLORIDE
     Indication: SENSITIVITY OF TEETH
     Route: 004
     Dates: start: 2014

REACTIONS (1)
  - Stomatitis necrotising [None]
